FAERS Safety Report 9109371 (Version 2)
Quarter: 2013Q1

REPORT INFORMATION
  Report Type: Spontaneous
  Country: CL (occurrence: CL)
  Receive Date: 20130222
  Receipt Date: 20130228
  Transmission Date: 20140127
  Serious: Yes (Hospitalization)
  Sender: FDA-Public Use
  Company Number: PHHY2013CL017221

PATIENT
  Age: 32 Year
  Sex: Female

DRUGS (5)
  1. LEPONEX / CLOZARIL [Suspect]
     Indication: DRUG DEPENDENCE
     Dosage: 150 MG, QD
     Route: 048
     Dates: start: 201209
  2. OXICODAL [Concomitant]
     Indication: IMPULSIVE BEHAVIOUR
     Dosage: 3 DF, (1 TABLET AT THE MORNING AND 2 TABLETS AT NIGHT)
     Route: 048
  3. FLUOXETINE [Concomitant]
     Indication: DEPRESSION
     Dosage: 20 MG, QD
     Route: 048
  4. EUTIROX [Concomitant]
     Indication: HYPOTHYROIDISM
     Dosage: 75 MG, QD
     Dates: start: 201211
  5. HIPOGLUCIN [Concomitant]
     Indication: GLUCOSE TOLERANCE IMPAIRED
     Dosage: UNK UKN, BID
     Route: 048
     Dates: start: 201211

REACTIONS (2)
  - Dependence [Recovering/Resolving]
  - Weight increased [Not Recovered/Not Resolved]
